FAERS Safety Report 9619484 (Version 1)
Quarter: 2013Q4

REPORT INFORMATION
  Report Type: Spontaneous
  Country: US (occurrence: US)
  Receive Date: 20131014
  Receipt Date: 20131014
  Transmission Date: 20140711
  Serious: No
  Sender: FDA-Public Use
  Company Number: US-009507513-1310USA006014

PATIENT
  Age: 3 Year
  Sex: Male
  Weight: 17.14 kg

DRUGS (3)
  1. CLARITIN ORAL SOLUTION [Suspect]
     Indication: SEASONAL ALLERGY
     Dosage: 5 MG, ONCE
     Route: 048
     Dates: start: 20131003
  2. CLARITIN ORAL SOLUTION [Suspect]
     Dosage: 5 MG, ONCE
     Route: 048
     Dates: start: 20131002
  3. CLARITIN ORAL SOLUTION [Suspect]
     Dosage: 5 MG, QD
     Route: 048

REACTIONS (2)
  - Vomiting [Unknown]
  - Accidental overdose [Unknown]
